FAERS Safety Report 14487841 (Version 1)
Quarter: 2018Q1

REPORT INFORMATION
  Report Type: Spontaneous
  Country: HU (occurrence: HU)
  Receive Date: 20180205
  Receipt Date: 20180205
  Transmission Date: 20180509
  Serious: Yes (Life-Threatening, Hospitalization)
  Sender: FDA-Public Use
  Company Number: HU-TEVA-2018-HU-851744

PATIENT
  Age: 65 Year
  Sex: Male

DRUGS (2)
  1. CALCIUM FOLINATE [Concomitant]
     Active Substance: LEUCOVORIN CALCIUM
     Dates: start: 20171207, end: 20171207
  2. FLUOROURACIL-TEVA [Suspect]
     Active Substance: FLUOROURACIL
     Route: 040
     Dates: start: 20171207, end: 20171207

REACTIONS (6)
  - Pruritus [Recovering/Resolving]
  - Hypotension [Recovering/Resolving]
  - Oxygen saturation decreased [Recovering/Resolving]
  - Feeling hot [Recovering/Resolving]
  - Bradycardia [Recovering/Resolving]
  - Dyspnoea [Recovering/Resolving]

NARRATIVE: CASE EVENT DATE: 20171207
